FAERS Safety Report 4459460-2 (Version None)
Quarter: 2004Q3

REPORT INFORMATION
  Report Type: 
  Country: None (occurrence: None)
  Receive Date: 20040927
  Receipt Date: 20040916
  Transmission Date: 20050211
  Serious: Yes (Other)
  Sender: FDA-Public Use
  Company Number: AR-ABBOTT-04P-007-0273740-00

PATIENT
  Age: 43 Year
  Sex: Male

DRUGS (4)
  1. VALCOTE [Suspect]
     Indication: DRUG ABUSER
     Route: 048
  2. VALCOTE [Suspect]
     Indication: ALCOHOLISM
  3. LAMOTRIGINE [Concomitant]
     Indication: DRUG ABUSER
  4. LAMOTRIGINE [Concomitant]
     Indication: ALCOHOLISM

REACTIONS (2)
  - LARYNGEAL OEDEMA [None]
  - TOXIC SKIN ERUPTION [None]
